FAERS Safety Report 18871314 (Version 1)
Quarter: 2021Q1

REPORT INFORMATION
  Report Type: Spontaneous
  Country: US (occurrence: US)
  Receive Date: 20210210
  Receipt Date: 20210210
  Transmission Date: 20210420
  Serious: No
  Sender: FDA-Public Use
  Company Number: US-SA-2021SA038149

PATIENT
  Age: 42 Year
  Sex: Male

DRUGS (1)
  1. DUPIXENT [Suspect]
     Active Substance: DUPILUMAB
     Indication: DERMATITIS ATOPIC
     Dosage: 300 MG, QOW
     Dates: start: 202101

REACTIONS (6)
  - Eczema [Not Recovered/Not Resolved]
  - Burning sensation [Unknown]
  - Herpes virus infection [Recovered/Resolved]
  - Conjunctivitis [Recovered/Resolved]
  - Rash [Unknown]
  - Papule [Unknown]
